FAERS Safety Report 18570080 (Version 1)
Quarter: 2020Q4

REPORT INFORMATION
  Report Type: Spontaneous
  Country: IT (occurrence: IT)
  Receive Date: 20201202
  Receipt Date: 20201202
  Transmission Date: 20210114
  Serious: Yes (Other)
  Sender: FDA-Public Use
  Company Number: IT-PFIZER INC-2020474045

PATIENT
  Age: 3 Year
  Sex: Female
  Weight: 14 kg

DRUGS (10)
  1. ZOFRAN [Concomitant]
     Active Substance: ONDANSETRON HYDROCHLORIDE
     Dosage: 15 MG
     Route: 042
     Dates: start: 20201112, end: 20201114
  2. HOLOXAN [Suspect]
     Active Substance: IFOSFAMIDE
     Indication: PLEUROPULMONARY BLASTOMA
     Dosage: 1980 MG, CYCLIC
     Route: 042
     Dates: start: 20201112, end: 20201114
  3. BACTRIM [Concomitant]
     Active Substance: SULFAMETHOXAZOLE\TRIMETHOPRIM
     Dosage: 10 ML
     Route: 048
     Dates: start: 20201112, end: 20201114
  4. DECADRON [Concomitant]
     Active Substance: DEXAMETHASONE
     Dosage: 3 MG
     Route: 042
     Dates: start: 20201112, end: 20201114
  5. COSMEGEN [Concomitant]
     Active Substance: DACTINOMYCIN
     Dosage: 1 MG
     Route: 042
     Dates: start: 20201112, end: 20201114
  6. ANTRA [Concomitant]
     Active Substance: OMEPRAZOLE
     Dosage: 20 MG
     Route: 042
     Dates: start: 20201112, end: 20201114
  7. ENDOXAN-BAXTER [Concomitant]
     Active Substance: CYCLOPHOSPHAMIDE
     Dosage: 408 MG
     Route: 042
     Dates: start: 20201112, end: 20201114
  8. UROMITEXAN [Concomitant]
     Active Substance: MESNA
     Dosage: 2000 MG
     Route: 042
     Dates: start: 20201112, end: 20201114
  9. VINCRISTINE SULFATE. [Suspect]
     Active Substance: VINCRISTINE SULFATE
     Indication: PLEUROPULMONARY BLASTOMA
     Dosage: 1 MG, CYCLIC
     Route: 042
     Dates: start: 20201112, end: 20201114
  10. LASIX [Concomitant]
     Active Substance: FUROSEMIDE
     Dosage: 5 MG
     Route: 042
     Dates: start: 20201112, end: 20201114

REACTIONS (2)
  - Pain [Recovering/Resolving]
  - Off label use [Unknown]

NARRATIVE: CASE EVENT DATE: 20201112
